FAERS Safety Report 11812741 (Version 1)
Quarter: 2015Q4

REPORT INFORMATION
  Report Type: Report from Study
  Country: TW (occurrence: TW)
  Receive Date: 20151209
  Receipt Date: 20151209
  Transmission Date: 20160305
  Serious: Yes (Other)
  Sender: FDA-Public Use
  Company Number: TW-009507513-1512TWN003115

PATIENT
  Age: 68 Year
  Sex: Female

DRUGS (3)
  1. PEGINTERFERON ALFA-2B [Suspect]
     Active Substance: PEGINTERFERON ALFA-2B
     Indication: HEPATITIS C
     Dosage: 1.5 MICROGRAM/KG, 1 IN 1 WEEK
     Route: 058
  2. RIBAVIRIN. [Suspect]
     Active Substance: RIBAVIRIN
     Indication: HEPATITIS C
     Dosage: 1000 MG/D FOR WEIGHT LESS THAN 75 KG AND 1200 MG/D FOR WEIGHT GREATER THAN OR EQUAL TO 75 KG
     Route: 048
  3. BOCEPREVIR [Suspect]
     Active Substance: BOCEPREVIR
     Indication: HEPATITIS C
     Dosage: DAILY DOSE 2400MG (800MG, 13 IN 1 DAY)
     Route: 065

REACTIONS (1)
  - Urinary tract infection [Unknown]
